FAERS Safety Report 4599125-X (Version None)
Quarter: 2005Q1

REPORT INFORMATION
  Report Type: 
  Country: None (occurrence: None)
  Receive Date: 20050302
  Receipt Date: 20050217
  Transmission Date: 20050727
  Serious: Yes (Life-Threatening, Hospitalization)
  Sender: FDA-Public Use
  Company Number: SP-2005-002075

PATIENT
  Age: 72 Year
  Sex: Female

DRUGS (4)
  1. VOTUM [Suspect]
     Indication: HYPERTENSION
     Dosage: 20 MG QD; PO
     Route: 048
     Dates: start: 20040914, end: 20050112
  2. EUTHYROX [Concomitant]
  3. DICLOFENAC [Concomitant]
  4. OMEPRAZOLE [Concomitant]

REACTIONS (2)
  - ASPHYXIA [None]
  - LARYNGOTRACHEITIS [None]
